FAERS Safety Report 17003944 (Version 1)
Quarter: 2019Q4

REPORT INFORMATION
  Report Type: Report from Study
  Country: CA (occurrence: CA)
  Receive Date: 20191107
  Receipt Date: 20191107
  Transmission Date: 20200122
  Serious: Yes (Other)
  Sender: FDA-Public Use
  Company Number: CA-ORION CORPORATION ORION PHARMA-TREX2019-5221

PATIENT
  Sex: Female

DRUGS (7)
  1. METHOTREXATE (TRADE NAME UNKNOWN) [Suspect]
     Active Substance: METHOTREXATE
     Indication: PRODUCT USED FOR UNKNOWN INDICATION
     Route: 065
  2. FOLIC ACID. [Suspect]
     Active Substance: FOLIC ACID
     Indication: PRODUCT USED FOR UNKNOWN INDICATION
     Route: 065
  3. COSENTYX [Suspect]
     Active Substance: SECUKINUMAB
     Indication: RHEUMATOID ARTHRITIS
     Route: 058
  4. COSENTYX [Suspect]
     Active Substance: SECUKINUMAB
     Indication: PSORIATIC ARTHROPATHY
     Route: 058
  5. MELOXICAM. [Concomitant]
     Active Substance: MELOXICAM
     Route: 065
  6. CIMZIA [Concomitant]
     Active Substance: CERTOLIZUMAB PEGOL
     Route: 058
  7. ENBREL [Concomitant]
     Active Substance: ETANERCEPT
     Route: 065

REACTIONS (5)
  - Psoriatic arthropathy [Unknown]
  - Product use in unapproved indication [Unknown]
  - Psoriasis [Unknown]
  - Drug ineffective [Unknown]
  - Infection [Unknown]
